FAERS Safety Report 6405123-3 (Version None)
Quarter: 2009Q4

REPORT INFORMATION
  Report Type: 
  Country: None (occurrence: None)
  Receive Date: 20091019
  Receipt Date: 20091009
  Transmission Date: 20100525
  Serious: Yes (Other)
  Sender: FDA-Public Use
  Company Number: US-ROCHE-662105

PATIENT
  Sex: Female

DRUGS (2)
  1. TAMIFLU [Suspect]
     Indication: DRUG USE FOR UNKNOWN INDICATION
     Dosage: DRUG: TAMIFLU (OSELTAMIVIR PHOSPHATE)
     Route: 065
  2. LEXAPRO [Concomitant]
     Dosage: DRUG REPORTED AS LEXIPRO

REACTIONS (1)
  - HALLUCINATION [None]
